FAERS Safety Report 10013697 (Version 2)
Quarter: 2014Q1

REPORT INFORMATION
  Report Type: Spontaneous
  Country: US (occurrence: US)
  Receive Date: 20140316
  Receipt Date: 20140316
  Transmission Date: 20141002
  Serious: Yes (Other)
  Sender: FDA-Public Use
  Company Number: US-GE HEALTHCARE MEDICAL DIAGNOSTICS-OSCN-PR-0807S-0462

PATIENT
  Age: 59 Year
  Sex: Female

DRUGS (23)
  1. OMNISCAN [Suspect]
     Indication: MUSCULOSKELETAL STIFFNESS
     Dates: start: 20040502, end: 20040502
  2. OMNISCAN [Suspect]
     Indication: PAIN
  3. OMNISCAN [Suspect]
     Indication: EXTRADURAL ABSCESS
  4. GADOLINIUM (UNSPECIFIED) [Suspect]
     Indication: SPINAL DISORDER
     Dates: start: 20010906, end: 20010906
  5. MAGNEVIST [Suspect]
     Indication: BACK PAIN
     Dates: start: 20020423, end: 20020423
  6. MAGNEVIST [Suspect]
     Indication: PAIN IN EXTREMITY
     Dates: start: 19980915, end: 19980915
  7. MAGNEVIST [Suspect]
     Indication: MUSCLE SPASMS
  8. MAGNEVIST [Suspect]
     Indication: TREMOR
  9. AMLODIPINE [Concomitant]
  10. EPOGEN [Concomitant]
  11. PROPANOLOL [Concomitant]
  12. LABETALOL [Concomitant]
  13. NORTRIPTYLINE [Concomitant]
  14. CALCIUM ACETATE [Concomitant]
  15. CLONAZEPAM [Concomitant]
  16. FEXOFENADINE [Concomitant]
  17. TEMAZEPAM [Concomitant]
  18. QUININE SULFATE [Concomitant]
  19. CALCITRIOL [Concomitant]
  20. SINEMET [Concomitant]
  21. ARANESP [Concomitant]
  22. IRON [Concomitant]
  23. RENAGEL [Concomitant]

REACTIONS (1)
  - Nephrogenic systemic fibrosis [Not Recovered/Not Resolved]
